FAERS Safety Report 14284160 (Version 1)
Quarter: 2017Q4

REPORT INFORMATION
  Report Type: Spontaneous
  Country: US (occurrence: US)
  Receive Date: 20171214
  Receipt Date: 20171214
  Transmission Date: 20180321
  Serious: No
  Sender: FDA-Public Use
  Company Number: None

PATIENT
  Age: 40 Year
  Sex: Female
  Weight: 96.75 kg

DRUGS (15)
  1. SYNTHROID [Concomitant]
     Active Substance: LEVOTHYROXINE SODIUM
  2. LISINOPRIL. [Concomitant]
     Active Substance: LISINOPRIL
  3. MILK THISTLE [Concomitant]
     Active Substance: DIETARY SUPPLEMENT\HERBALS\MILK THISTLE
  4. KLONOPIN [Concomitant]
     Active Substance: CLONAZEPAM
  5. HAIR/SKIN/NAILS GUMMIES [Concomitant]
  6. RISPERIDONE. [Concomitant]
     Active Substance: RISPERIDONE
  7. METFORMIN [Concomitant]
     Active Substance: METFORMIN HYDROCHLORIDE
  8. CALCIUM WITH VITAMIN D [Concomitant]
     Active Substance: CALCIUM\VITAMIN D
  9. OTEZLA [Suspect]
     Active Substance: APREMILAST
     Indication: PSORIATIC ARTHROPATHY
     Dosage: ?          QUANTITY:1 TABLET(S);?
     Route: 048
     Dates: start: 20171205
  10. PRENATAL VITAMINS [Concomitant]
     Active Substance: VITAMINS
  11. LAMICTAL [Concomitant]
     Active Substance: LAMOTRIGINE
  12. ESTRADIOL. [Concomitant]
     Active Substance: ESTRADIOL
  13. FISH OIL [Concomitant]
     Active Substance: FISH OIL
  14. FOLIC ACID. [Concomitant]
     Active Substance: FOLIC ACID
  15. VITAMIN C [Concomitant]
     Active Substance: ASCORBIC ACID

REACTIONS (1)
  - Hallucination [None]

NARRATIVE: CASE EVENT DATE: 20171214
